FAERS Safety Report 6222926-9 (Version None)
Quarter: 2009Q2

REPORT INFORMATION
  Report Type: 
  Country: None (occurrence: None)
  Receive Date: 20090611
  Receipt Date: 20081218
  Transmission Date: 20091009
  Serious: No
  Sender: FDA-Public Use
  Company Number: US-BAYER-200841197NA

PATIENT
  Sex: Female

DRUGS (1)
  1. NEXAVAR [Suspect]
     Indication: THYROID CANCER
     Dosage: TOTAL DAILY DOSE: 800 MG  UNIT DOSE: 200 MG
     Route: 048
     Dates: start: 20081203, end: 20081201

REACTIONS (4)
  - DIARRHOEA [None]
  - NAUSEA [None]
  - PAIN OF SKIN [None]
  - RASH ERYTHEMATOUS [None]
